FAERS Safety Report 25446278 (Version 1)
Quarter: 2025Q2

REPORT INFORMATION
  Report Type: Spontaneous
  Country: CH (occurrence: CH)
  Receive Date: 20250617
  Receipt Date: 20250617
  Transmission Date: 20250716
  Serious: Yes (Death, Life-Threatening, Hospitalization, Other)
  Sender: BRISTOL-MYERS SQUIBB COMPANY
  Company Number: None

PATIENT
  Age: 59 Year
  Sex: Male
  Weight: 80.2 kg

DRUGS (1)
  1. KRAZATI [Suspect]
     Active Substance: ADAGRASIB
     Indication: Metastatic bronchial carcinoma
     Dosage: FREE GOODS MADE OF EAP FROM BMS
     Route: 048
     Dates: start: 20250129

REACTIONS (2)
  - Intestinal perforation [Fatal]
  - Pneumonia [Unknown]

NARRATIVE: CASE EVENT DATE: 20250504
